FAERS Safety Report 7674999-4 (Version None)
Quarter: 2011Q3

REPORT INFORMATION
  Report Type: 
  Country: None (occurrence: None)
  Receive Date: 20110810
  Receipt Date: 20110802
  Transmission Date: 20111222
  Serious: Yes (Other)
  Sender: FDA-Public Use
  Company Number: US-BAYER-201039304NA

PATIENT
  Age: 19 Year
  Sex: Female
  Weight: 66.667 kg

DRUGS (4)
  1. YAZ [Suspect]
     Indication: CONTRACEPTION
     Dosage: UNK UNK, QD
     Route: 048
     Dates: start: 20060601, end: 20090101
  2. YASMIN [Suspect]
     Indication: CONTRACEPTION
     Dosage: UNK UNK, QD
     Route: 048
     Dates: start: 20060601, end: 20090101
  3. LANTUS [Concomitant]
     Dosage: UNK
     Dates: start: 20080501
  4. AZITHROMYCIN [Concomitant]
     Dosage: UNK
     Dates: start: 20060207

REACTIONS (3)
  - BILIARY DYSKINESIA [None]
  - GALLBLADDER INJURY [None]
  - CHOLECYSTITIS CHRONIC [None]
